FAERS Safety Report 8977142 (Version 1)
Quarter: 2012Q4

REPORT INFORMATION
  Report Type: 
  Country: US (occurrence: US)
  Receive Date: 20121220
  Receipt Date: 20121220
  Transmission Date: 20130627
  Serious: Yes (Hospitalization)
  Sender: FDA-Public Use
  Company Number: US-BIOGENIDEC-2012BI060482

PATIENT
  Age: 53 Year
  Sex: Female

DRUGS (1)
  1. AVONEX [Suspect]
     Indication: MULTIPLE SCLEROSIS
     Route: 030
     Dates: start: 19990620

REACTIONS (9)
  - Optic neuritis [Recovered/Resolved]
  - Hemiplegia [Recovered/Resolved]
  - Multiple sclerosis relapse [Recovered/Resolved]
  - Abdominal discomfort [Not Recovered/Not Resolved]
  - Frustration [Not Recovered/Not Resolved]
  - Bladder disorder [Not Recovered/Not Resolved]
  - Influenza like illness [Not Recovered/Not Resolved]
  - Insomnia [Not Recovered/Not Resolved]
  - Muscle spasms [Not Recovered/Not Resolved]
